FAERS Safety Report 9814688 (Version 2)
Quarter: 2014Q1

REPORT INFORMATION
  Report Type: Spontaneous
  Country: US (occurrence: US)
  Receive Date: 20140113
  Receipt Date: 20140113
  Transmission Date: 20141002
  Serious: Yes (Hospitalization)
  Sender: FDA-Public Use
  Company Number: US-SANOFI-AVENTIS-2012SA088525

PATIENT
  Age: 65 Year
  Sex: Female
  Weight: 69.6 kg

DRUGS (4)
  1. DOCETAXEL [Suspect]
     Indication: BREAST CANCER
     Dosage: FORM- VIAL,DOSE LEVEL 75 MG/M2
     Route: 042
     Dates: start: 20090106
  2. TRASTUZUMAB [Suspect]
     Indication: BREAST CANCER
     Dosage: FORM- VIAL, DOSE LEVEL 8 MG/KG
     Route: 042
     Dates: start: 20090106
  3. BEVACIZUMAB [Suspect]
     Indication: BREAST CANCER
     Dosage: FORM- VIAL, DOSE LEVEL 15 MG/KG
     Route: 042
     Dates: start: 20090106
  4. CARBOPLATIN [Suspect]
     Indication: BREAST CANCER
     Dosage: FORM- VIAL, DOSE LEVEL 6 AUC
     Route: 042
     Dates: start: 20090106

REACTIONS (1)
  - Febrile neutropenia [Recovered/Resolved]
